FAERS Safety Report 8580400 (Version 2)
Quarter: 2014Q1

REPORT INFORMATION
  Report Type: Spontaneous
  Country: US (occurrence: None)
  Receive Date: 20120323
  Receipt Date: 20130305
  Transmission Date: 20141002
  Serious: Yes (Hospitalization, Other)
  Sender: FDA-Public Use
  Company Number: 163-21880-11041968

PATIENT
  Age: 73 Year
  Sex: Male
  Weight: 88.9 kg

DRUGS (8)
  1. REVLIMID [Suspect]
     Indication: PLASMA CELL MYELOMA
     Dosage: 25;10 MG, DAILY, PO
     Route: 048
     Dates: start: 201103
  2. DEXAMETHASONE (DEXAMETHASONE) (UNKNOWN) [Concomitant]
  3. ESOMEPRAZOLE (ESOMEPRAZOLE) (UNKNOWN) [Concomitant]
  4. LASIX (FUROSEMIDE) (UNKNOWN) [Concomitant]
  5. LOSARTAN (LOSARTAN) (UNKNOWN) [Concomitant]
  6. METOPROLOL (METOPROLOL) (UNKNOWN) [Concomitant]
  7. PRAVASTATIN (PRAVASTATIN) (UNKNOWN) [Concomitant]
  8. METHIMAZOLE (METHIMAZOLE) (UNKNOWN) [Concomitant]

REACTIONS (1)
  - Renal impairment [None]
